FAERS Safety Report 13853974 (Version 1)
Quarter: 2017Q3

REPORT INFORMATION
  Report Type: Report from Study
  Country: CA (occurrence: CA)
  Receive Date: 20170810
  Receipt Date: 20170810
  Transmission Date: 20171127
  Serious: Yes (Death)
  Sender: FDA-Public Use
  Company Number: PHHY2016CA046762

PATIENT
  Age: 66 Year
  Sex: Male

DRUGS (2)
  1. SANDOSTATIN LAR DEPOT [Suspect]
     Active Substance: OCTREOTIDE ACETATE
     Indication: MENINGIOMA
     Dosage: 30 MG, QMO
     Route: 030
     Dates: start: 20150821, end: 20150918
  2. SANDOSTATIN LAR DEPOT [Suspect]
     Active Substance: OCTREOTIDE ACETATE
     Dosage: 40 MG, QMO
     Route: 030
     Dates: start: 20151016, end: 20160531

REACTIONS (5)
  - Product use in unapproved indication [Unknown]
  - Speech disorder [Unknown]
  - Blood pressure systolic increased [Unknown]
  - Death [Fatal]
  - Communication disorder [Unknown]

NARRATIVE: CASE EVENT DATE: 20150821
